FAERS Safety Report 13449109 (Version 1)
Quarter: 2017Q2

REPORT INFORMATION
  Report Type: Spontaneous
  Country: US (occurrence: US)
  Receive Date: 20170417
  Receipt Date: 20170417
  Transmission Date: 20170830
  Serious: No
  Sender: FDA-Public Use
  Company Number: US-PFIZER INC-2017161844

PATIENT
  Age: 51 Year
  Sex: Female

DRUGS (2)
  1. LETROZOLE. [Suspect]
     Active Substance: LETROZOLE
     Dosage: UNK
  2. IBRANCE [Suspect]
     Active Substance: PALBOCICLIB
     Indication: BREAST CANCER
     Dosage: 125 MG, CYCLIC (DAILY FOR 21 DAYS AND THEN 7 DAYS OFF)
     Route: 048
     Dates: start: 201702

REACTIONS (5)
  - Pain in extremity [Unknown]
  - Decreased appetite [Unknown]
  - Fatigue [Unknown]
  - Back pain [Unknown]
  - Hot flush [Unknown]
